FAERS Safety Report 9000683 (Version 1)
Quarter: 2013Q1

REPORT INFORMATION
  Report Type: Spontaneous
  Country: US (occurrence: US)
  Receive Date: 20130107
  Receipt Date: 20130107
  Transmission Date: 20140127
  Serious: No
  Sender: FDA-Public Use
  Company Number: US-PFIZER INC-2013005275

PATIENT
  Sex: Female
  Weight: 106.58 kg

DRUGS (7)
  1. LYRICA [Suspect]
     Indication: FIBROMYALGIA
     Dosage: 150 MG, 2X/DAY
     Dates: end: 201107
  2. CYMBALTA [Concomitant]
     Dosage: 60 MG, DAILY
  3. OMEPRAZOLE [Concomitant]
     Indication: GASTRIC DISORDER
     Dosage: 40 MG, DAILY
  4. FOLIC ACID [Concomitant]
     Indication: RHEUMATOID ARTHRITIS
     Dosage: 1 MG, DAILY
  5. FOLIC ACID [Concomitant]
     Indication: OSTEOARTHRITIS
  6. METHOTREXATE [Concomitant]
     Indication: RHEUMATOID ARTHRITIS
     Dosage: 10 MG, WEEKLY
  7. METHOTREXATE [Concomitant]
     Indication: OSTEOARTHRITIS

REACTIONS (3)
  - Weight increased [Unknown]
  - Feeling abnormal [Unknown]
  - Pain [Unknown]
